FAERS Safety Report 25059310 (Version 1)
Quarter: 2025Q1

REPORT INFORMATION
  Report Type: Spontaneous
  Country: US (occurrence: US)
  Receive Date: 20250310
  Receipt Date: 20250310
  Transmission Date: 20250409
  Serious: No
  Sender: MYLAN
  Company Number: US-MYLANLABS-2025M1014663

PATIENT
  Sex: Female

DRUGS (1)
  1. ESTRADIOL TRANSDERMAL SYSTEM [Suspect]
     Active Substance: ESTRADIOL
     Indication: Artificial menopause
     Dosage: 0.05 MILLIGRAM, QD (TWICE A WEEK)

REACTIONS (17)
  - Dyspnoea [Unknown]
  - Arthralgia [Unknown]
  - Throat tightness [Unknown]
  - Sinus disorder [Unknown]
  - Candida infection [Unknown]
  - Application site laceration [Unknown]
  - Nasal discomfort [Unknown]
  - Erythema [Unknown]
  - Chest pain [Unknown]
  - Night sweats [Unknown]
  - Illness [Unknown]
  - Dysphonia [Unknown]
  - Dermatitis contact [Unknown]
  - Headache [Unknown]
  - Application site pain [Unknown]
  - Drug ineffective [Unknown]
  - Product substitution issue [Unknown]
